FAERS Safety Report 8184986-8 (Version None)
Quarter: 2012Q1

REPORT INFORMATION
  Report Type: 
  Country: None (occurrence: None)
  Receive Date: 20120305
  Receipt Date: 20120223
  Transmission Date: 20120608
  Serious: Yes (Other)
  Sender: FDA-Public Use
  Company Number: CN-GLAXOSMITHKLINE-B0785450A

PATIENT

DRUGS (2)
  1. LAMIVUDINE (EPIVIR HBV) [Suspect]
     Indication: ANTIVIRAL PROPHYLAXIS
     Dosage: 100MG PER DAY
     Route: 048
  2. HEPATITIS B IMMUNE GLOBULIN (HUMAN) [Suspect]
     Indication: ANTIVIRAL PROPHYLAXIS
     Route: 042

REACTIONS (1)
  - JAUNDICE [None]
